FAERS Safety Report 5704349-1 (Version None)
Quarter: 2008Q2

REPORT INFORMATION
  Report Type: 
  Country: None (occurrence: None)
  Receive Date: 20080411
  Receipt Date: 20080411
  Transmission Date: 20081010
  Serious: Yes (Hospitalization)
  Sender: FDA-Public Use
  Company Number: None

PATIENT
  Sex: Male
  Weight: 66 kg

DRUGS (3)
  1. FLUOROURACIL [Suspect]
     Indication: TONGUE NEOPLASM MALIGNANT STAGE UNSPECIFIED
     Dosage: 600MG/M2 IV QD X 5D
     Route: 042
     Dates: start: 20080330, end: 20080404
  2. HYDREA [Suspect]
     Indication: TONGUE NEOPLASM MALIGNANT STAGE UNSPECIFIED
     Dosage: 500MG PO BID
     Route: 048
     Dates: start: 20080330, end: 20080404
  3. CETUXIMAB [Suspect]
     Dosage: 250MG/M2 IV QW
     Route: 042

REACTIONS (4)
  - CATHETER RELATED INFECTION [None]
  - CULTURE POSITIVE [None]
  - PSEUDOMONAS INFECTION [None]
  - WOUND COMPLICATION [None]
